FAERS Safety Report 22397747 (Version 1)
Quarter: 2023Q2

REPORT INFORMATION
  Report Type: Spontaneous
  Country: US (occurrence: US)
  Receive Date: 20230602
  Receipt Date: 20230602
  Transmission Date: 20230721
  Serious: No
  Sender: FDA-Public Use
  Company Number: US-JNJFOC-20230568750

PATIENT
  Age: 85 Year
  Sex: Female

DRUGS (2)
  1. MACITENTAN [Suspect]
     Active Substance: MACITENTAN
     Indication: Product used for unknown indication
     Route: 048
     Dates: start: 20220228
  2. SULFACETAMIDE\SULFADIAZINE\SULFAMETHAZINE\SULFAMERAZINE [Suspect]
     Active Substance: SULFACETAMIDE\SULFADIAZINE\SULFAMETHAZINE\SULFAMERAZINE
     Indication: Product used for unknown indication
     Route: 065

REACTIONS (3)
  - Drug hypersensitivity [Unknown]
  - Product prescribing error [Unknown]
  - Rash macular [Unknown]
